FAERS Safety Report 21720790 (Version 4)
Quarter: 2023Q1

REPORT INFORMATION
  Report Type: Spontaneous
  Country: US (occurrence: US)
  Receive Date: 20221213
  Receipt Date: 20230324
  Transmission Date: 20230418
  Serious: Yes (Other)
  Sender: FDA-Public Use
  Company Number: US-UNITED THERAPEUTICS-UNT-2022-029141

PATIENT
  Sex: Female
  Weight: 59.002 kg

DRUGS (3)
  1. REMODULIN [Suspect]
     Active Substance: TREPROSTINIL
     Indication: Pulmonary arterial hypertension
     Dosage: UNK, CONTINUING
     Route: 058
     Dates: start: 20221025
  2. REMODULIN [Suspect]
     Active Substance: TREPROSTINIL
     Dosage: 0.020 ?G/KG (SELF-FILLED REMUNITY FILL CASSETTE WITH 1.9 ML AT RATE OF 20 MCL/HOUR), CONTINUING
     Route: 058
     Dates: start: 2022
  3. REMODULIN [Suspect]
     Active Substance: TREPROSTINIL
     Dosage: 0.020 ?G/KG (SELF-FILLED REMUNITY FILL CASSETTE WITH 2.5ML AT RATE OF 28 MCL/HOUR), CONTINUING
     Route: 058
     Dates: start: 2022

REACTIONS (17)
  - Pulmonary arterial hypertension [Unknown]
  - Device dislocation [Unknown]
  - Infusion site haemorrhage [Unknown]
  - Dyspnoea [Unknown]
  - Dizziness [Unknown]
  - Decreased activity [Unknown]
  - Diarrhoea [Recovered/Resolved]
  - Malaise [Unknown]
  - Chest pain [Unknown]
  - Abdominal pain [Unknown]
  - Abdominal distension [Unknown]
  - Infusion site reaction [Unknown]
  - Device power source issue [Unknown]
  - Device information output issue [Unknown]
  - Headache [Unknown]
  - Device failure [Unknown]
  - Device wireless communication issue [Unknown]

NARRATIVE: CASE EVENT DATE: 20220101
